FAERS Safety Report 10247523 (Version 1)
Quarter: 2014Q1

REPORT INFORMATION
  Report Type: Spontaneous
  Country: US (occurrence: None)
  Receive Date: 20140306
  Receipt Date: 20140306
  Transmission Date: 20141002
  Serious: Yes (Disabling)
  Sender: FDA-Public Use
  Company Number: 163-21880-13043811

PATIENT
  Age: 66 Year
  Sex: Male

DRUGS (2)
  1. REVLIMID (LENALIDOMIDE) (10 MILLIGRAM, CAPSULES) [Suspect]
     Indication: MYELODYSPLASTIC SYNDROME
     Route: 048
     Dates: start: 20120720
  2. BLOOD TRANSFUSION (BLOOD TRANSFUSION, AUXILIARY PRODUCTS) (UNKNOWN) [Concomitant]

REACTIONS (4)
  - Drug ineffective [None]
  - Iron overload [None]
  - Myelodysplastic syndrome [None]
  - Disease progression [None]
